FAERS Safety Report 19739265 (Version 3)
Quarter: 2021Q4

REPORT INFORMATION
  Report Type: Report from Study
  Country: AU (occurrence: AU)
  Receive Date: 20210824
  Receipt Date: 20211018
  Transmission Date: 20220303
  Serious: Yes (Other)
  Sender: FDA-Public Use
  Company Number: AU-BAYER-2021-197868

PATIENT
  Age: 41 Year
  Sex: Male

DRUGS (11)
  1. CIPROFLOXACIN [Suspect]
     Active Substance: CIPROFLOXACIN
     Indication: Arthritis bacterial
     Route: 048
  2. CEFTRIAXONE [Suspect]
     Active Substance: CEFTRIAXONE
     Indication: Arthritis bacterial
  3. CEFEPIME [Suspect]
     Active Substance: CEFEPIME HYDROCHLORIDE
     Indication: Arthritis bacterial
  4. CEFEPIME [Suspect]
     Active Substance: CEFEPIME HYDROCHLORIDE
     Indication: Arthritis bacterial
  5. MEROPENEM [Suspect]
     Active Substance: MEROPENEM
     Indication: Arthritis bacterial
     Dosage: UNK
     Route: 042
     Dates: start: 20180121, end: 20180126
  6. VANCOMYCIN [Suspect]
     Active Substance: VANCOMYCIN
     Indication: Arthritis bacterial
     Dosage: UNK
     Route: 042
     Dates: start: 20180108, end: 20180124
  7. RIFAMPIN [Suspect]
     Active Substance: RIFAMPIN
     Indication: Arthritis bacterial
  8. CLINDAMYCIN [Suspect]
     Active Substance: CLINDAMYCIN
     Indication: Arthritis bacterial
     Dosage: UNK
     Route: 048
     Dates: start: 20180104, end: 20180114
  9. FLUCLOXACILLIN [Suspect]
     Active Substance: FLUCLOXACILLIN
     Indication: Arthritis bacterial
     Dosage: UNK
     Dates: end: 20180108
  10. CEPHALEXIN [Suspect]
     Active Substance: CEPHALEXIN
     Indication: Arthritis bacterial
     Dosage: UNK
     Dates: start: 20180909, end: 20180911
  11. PREDNISOLONE [Concomitant]
     Active Substance: PREDNISOLONE
     Dosage: 1 MG

REACTIONS (1)
  - Drug reaction with eosinophilia and systemic symptoms [Recovered/Resolved]

NARRATIVE: CASE EVENT DATE: 20180128
